FAERS Safety Report 4934833-X (Version None)
Quarter: 2006Q1

REPORT INFORMATION
  Report Type: 
  Country: None (occurrence: None)
  Receive Date: 20060303
  Receipt Date: 20060221
  Transmission Date: 20060701
  Serious: Yes (Other)
  Sender: FDA-Public Use
  Company Number: 217949

PATIENT
  Age: 63 Year
  Sex: Female
  Weight: 51 kg

DRUGS (15)
  1. RITUXAN [Suspect]
     Indication: NON-HODGKIN'S LYMPHOMA
     Dosage: 554.778 MG, INTRAVENOUS
     Route: 042
     Dates: start: 20050214, end: 20050311
  2. DOXORUBICIN HCL [Suspect]
  3. CYCLOPHOSPHAMIDE [Suspect]
     Dates: start: 20040921, end: 20041220
  4. CYCLOPHOSPHAMIDE [Suspect]
     Dates: start: 20040831
  5. VINCRISTINE [Suspect]
     Dates: start: 20040921, end: 20041220
  6. VINCRISTINE [Suspect]
     Dates: start: 20040831
  7. PREDNISOLONE [Suspect]
     Dates: start: 20040921, end: 20041220
  8. PREDNISOLONE [Suspect]
     Dates: start: 20040831
  9. CARBOPLATIN [Concomitant]
  10. ETOPOSIDE [Concomitant]
  11. CYTARABINE [Concomitant]
  12. SOLU-MEDROL [Concomitant]
  13. RADIATION THERAPY (RADIATION THERAPY) [Concomitant]
  14. CHLORPHENIRAMINE MALEATE [Concomitant]
  15. HYDROCORTONE (HYDROCORTISONE) [Concomitant]

REACTIONS (2)
  - NEUTROPHIL COUNT DECREASED [None]
  - WHITE BLOOD CELL COUNT DECREASED [None]
